FAERS Safety Report 7715148-3 (Version None)
Quarter: 2011Q3

REPORT INFORMATION
  Report Type: 
  Country: None (occurrence: None)
  Receive Date: 20110829
  Receipt Date: 20110818
  Transmission Date: 20111222
  Serious: Yes (Hospitalization)
  Sender: FDA-Public Use
  Company Number: PHHY2011IT74720

PATIENT
  Sex: Male

DRUGS (8)
  1. EZETIMIBE [Concomitant]
     Dosage: UNK UKN, UNK
  2. PLAVIX [Concomitant]
     Dosage: UNK UKN, UNK
  3. CORDARONE [Concomitant]
     Dosage: UNK UKN, UNK
  4. AMLODIPINE [Concomitant]
     Dosage: UNK UKN, UNK
  5. CELLCEPT [Suspect]
     Indication: RENAL TRANSPLANT
     Dosage: 1000 MG, UNK
     Route: 048
     Dates: start: 20030201, end: 20071006
  6. LANSOPRAZOLE [Concomitant]
     Dosage: UNK UKN, UNK
  7. COUMADIN [Concomitant]
     Dosage: UNK UKN, UNK
  8. NEORAL [Suspect]
     Indication: RENAL TRANSPLANT
     Dosage: 200 MG, UNK
     Route: 048
     Dates: start: 20030201, end: 20071006

REACTIONS (2)
  - MYOCARDIAL INFARCTION [None]
  - DEVICE OCCLUSION [None]
